FAERS Safety Report 6474968-6 (Version None)
Quarter: 2009Q4

REPORT INFORMATION
  Report Type: 
  Country: None (occurrence: None)
  Receive Date: 20091204
  Receipt Date: 20090723
  Transmission Date: 20100525
  Serious: Yes (Hospitalization)
  Sender: FDA-Public Use
  Company Number: US-ELI_LILLY_AND_COMPANY-US200903005623

PATIENT
  Sex: Male
  Weight: 97.959 kg

DRUGS (8)
  1. CYMBALTA [Suspect]
     Dosage: 60 MG, DAILY (1/D)
  2. OXYCONTIN [Concomitant]
  3. METHADONE HYDROCHLORIDE [Concomitant]
     Dosage: 50 MG, DAILY (1/D)
  4. METHADONE HYDROCHLORIDE [Concomitant]
     Dosage: 15 MG, 2/D
  5. CYCLOBENZAPRINE [Concomitant]
  6. CANNABIS [Concomitant]
  7. ULTRAM [Concomitant]
  8. LYRICA [Concomitant]
     Dosage: 75 MG, 2/D

REACTIONS (9)
  - ABSCESS [None]
  - ANXIETY [None]
  - ARTHROPOD BITE [None]
  - CELLULITIS [None]
  - DEPRESSION [None]
  - DRUG INEFFECTIVE [None]
  - DYSARTHRIA [None]
  - HYPERGLYCAEMIA [None]
  - WOUND INFECTION STAPHYLOCOCCAL [None]
